FAERS Safety Report 7683530-9 (Version None)
Quarter: 2011Q3

REPORT INFORMATION
  Report Type: 
  Country: None (occurrence: None)
  Receive Date: 20110815
  Receipt Date: 20110805
  Transmission Date: 20111222
  Serious: Yes (Life-Threatening, Hospitalization)
  Sender: FDA-Public Use
  Company Number: JP-MERCK-1106USA00721

PATIENT
  Age: 70 Year
  Sex: Male
  Weight: 66 kg

DRUGS (7)
  1. URALYT [Concomitant]
     Indication: HYPERURICAEMIA
     Dosage: DAILY DOSAGE UNKNOWN
     Route: 048
     Dates: start: 20041023, end: 20080210
  2. JANUVIA [Suspect]
     Indication: DIABETES MELLITUS
     Dosage: DAILY DOSAGE UNKNOWN
     Route: 048
     Dates: start: 20110418, end: 20110525
  3. ALLOPURINOL [Concomitant]
     Indication: HYPERURICAEMIA
     Dosage: DAILY DOSAGE UNKNOWN
     Route: 048
     Dates: start: 20041023, end: 20100210
  4. LIPITOR [Concomitant]
     Indication: DYSLIPIDAEMIA
     Dosage: DAILY DOSAGE UNKNOWN
     Route: 048
     Dates: start: 20101118
  5. ALLOPURINOL [Concomitant]
     Indication: HYPERURICAEMIA
     Route: 048
     Dates: start: 20100210
  6. POTASSIUM SODIUM HYDROGEN CITRATE [Concomitant]
     Indication: HYPERURICAEMIA
     Route: 048
     Dates: start: 20100210
  7. ACTOS [Concomitant]
     Indication: DIABETES MELLITUS
     Dosage: DAILY DOSAGE UNKNOWN
     Route: 048
     Dates: start: 20080516

REACTIONS (1)
  - INTERSTITIAL LUNG DISEASE [None]
